FAERS Safety Report 24209864 (Version 5)
Quarter: 2025Q1

REPORT INFORMATION
  Report Type: Report from Study
  Country: US (occurrence: US)
  Receive Date: 20240814
  Receipt Date: 20250127
  Transmission Date: 20250409
  Serious: Yes (Hospitalization, Other)
  Sender: NOVARTIS
  Company Number: US-002147023-NVSC2024US110792

PATIENT
  Age: 56 Year
  Sex: Female

DRUGS (1)
  1. KESIMPTA [Suspect]
     Active Substance: OFATUMUMAB
     Indication: Multiple sclerosis
     Dosage: 20 MG, QMO
     Route: 058
     Dates: start: 20240325

REACTIONS (27)
  - Multiple sclerosis relapse [Not Recovered/Not Resolved]
  - Peroneal nerve palsy [Unknown]
  - Lower respiratory tract infection [Recovering/Resolving]
  - Headache [Not Recovered/Not Resolved]
  - Asthenia [Not Recovered/Not Resolved]
  - Feeling abnormal [Not Recovered/Not Resolved]
  - Back pain [Unknown]
  - Illness [Unknown]
  - Body temperature increased [Unknown]
  - Feeling hot [Recovering/Resolving]
  - Retching [Unknown]
  - Vomiting [Unknown]
  - COVID-19 [Unknown]
  - Crying [Unknown]
  - Nasopharyngitis [Recovering/Resolving]
  - Cough [Recovering/Resolving]
  - Herpes zoster [Not Recovered/Not Resolved]
  - Immune system disorder [Recovering/Resolving]
  - Gait inability [Recovering/Resolving]
  - Blood pressure increased [Recovering/Resolving]
  - Migraine [Recovering/Resolving]
  - Anxiety [Not Recovered/Not Resolved]
  - Depression [Not Recovered/Not Resolved]
  - Fatigue [Not Recovered/Not Resolved]
  - Balance disorder [Unknown]
  - Fall [Unknown]
  - Contusion [Unknown]

NARRATIVE: CASE EVENT DATE: 20240401
